FAERS Safety Report 7389358-1 (Version None)
Quarter: 2011Q2

REPORT INFORMATION
  Report Type: 
  Country: None (occurrence: None)
  Receive Date: 20110401
  Receipt Date: 20110325
  Transmission Date: 20111010
  Serious: Yes (Life-Threatening, Hospitalization)
  Sender: FDA-Public Use
  Company Number: B0701621A

PATIENT
  Age: 76 Year
  Sex: Male

DRUGS (12)
  1. METFORMIN HCL [Concomitant]
  2. DEXAMETHASONE [Suspect]
     Route: 048
     Dates: start: 20110111, end: 20110113
  3. ONDANSETRON HYDROCHLORIDE [Suspect]
     Route: 042
     Dates: start: 20110111, end: 20110111
  4. ASPIRIN [Concomitant]
  5. IRINOTECAN HCL [Suspect]
     Indication: COLON CANCER STAGE IV
     Route: 042
     Dates: start: 20110111, end: 20110111
  6. GLICLAZIDE [Concomitant]
  7. AMLODIPINE [Concomitant]
  8. BISOPROLOL FUMARATE [Concomitant]
  9. ISOSORBIDE MONONITRATE [Concomitant]
  10. PRAVASTATIN SODIUM [Concomitant]
  11. IRBESARTAN [Concomitant]
  12. FERROUS SULFATE TAB [Concomitant]

REACTIONS (4)
  - DIARRHOEA [None]
  - ACUTE MYOCARDIAL INFARCTION [None]
  - VOMITING [None]
  - CHEST DISCOMFORT [None]
